FAERS Safety Report 4431022-2 (Version None)
Quarter: 2004Q3

REPORT INFORMATION
  Report Type: 
  Country: None (occurrence: None)
  Receive Date: 20040816
  Receipt Date: 20040730
  Transmission Date: 20050211
  Serious: Yes (Hospitalization)
  Sender: FDA-Public Use
  Company Number: A01200403548

PATIENT
  Age: 60 Year
  Sex: Female

DRUGS (8)
  1. PLAVIX [Suspect]
     Indication: ACUTE MYOCARDIAL INFARCTION
     Dosage: 75 MG QD ORAL
     Route: 048
     Dates: start: 20040624, end: 20040630
  2. PLAVIX [Suspect]
     Indication: STENT PLACEMENT
     Dosage: 75 MG QD ORAL
     Route: 048
     Dates: start: 20040624, end: 20040630
  3. ATORVASTATIN CALCIUM [Suspect]
     Indication: HYPERCHOLESTEROLAEMIA
     Dosage: 20 MG QD ORAL
     Route: 048
     Dates: start: 20040624, end: 20040701
  4. TOREM (TORASEMIDE) [Concomitant]
  5. FRAXIPARINE (HEPARIN-FRACTION, CALCIUM SALT) [Concomitant]
  6. ASPIRIN [Concomitant]
  7. DE-URSIL (URSODEOXYCHOLIC ACID) [Concomitant]
  8. ACCUPRIL [Concomitant]

REACTIONS (2)
  - CARDIAC FAILURE [None]
  - STEVENS-JOHNSON SYNDROME [None]
